FAERS Safety Report 4685324-5 (Version None)
Quarter: 2005Q2

REPORT INFORMATION
  Report Type: 
  Country: None (occurrence: None)
  Receive Date: 20050608
  Receipt Date: 20050224
  Transmission Date: 20051028
  Serious: Yes (Hospitalization, Disabling)
  Sender: FDA-Public Use
  Company Number: US-ROCHE-396767

PATIENT
  Age: 17 Year
  Sex: Male
  Weight: 73.5 kg

DRUGS (2)
  1. ACCUTANE [Suspect]
     Dosage: TAKEN DAILY.
     Route: 048
     Dates: start: 20010110, end: 20010614
  2. ACCUTANE [Suspect]
     Route: 048
     Dates: start: 20010614, end: 20010720

REACTIONS (33)
  - ABDOMINAL TENDERNESS [None]
  - ALLERGIC COLITIS [None]
  - ANAL FISSURE [None]
  - COELIAC DISEASE [None]
  - COLITIS [None]
  - COLITIS ULCERATIVE [None]
  - CONSTIPATION [None]
  - COSTOCHONDRITIS [None]
  - COUGH [None]
  - DEFAECATION URGENCY [None]
  - DRUG HYPERSENSITIVITY [None]
  - EAR PAIN [None]
  - GASTROINTESTINAL DISORDER [None]
  - HAEMORRHOIDS [None]
  - HEADACHE [None]
  - ILL-DEFINED DISORDER [None]
  - INFLAMMATORY BOWEL DISEASE [None]
  - INTESTINAL HAEMORRHAGE [None]
  - MULTI-ORGAN DISORDER [None]
  - NAUSEA [None]
  - PENIS DISORDER [None]
  - PHARYNGOLARYNGEAL PAIN [None]
  - PYREXIA [None]
  - RECTAL HAEMORRHAGE [None]
  - RECTAL TENESMUS [None]
  - RECTAL ULCER [None]
  - RHINITIS ALLERGIC [None]
  - SCOLIOSIS [None]
  - SIGMOIDOSCOPY ABNORMAL [None]
  - SKIN TEST POSITIVE [None]
  - TREMOR [None]
  - VIRAL INFECTION [None]
  - WEIGHT DECREASED [None]
